FAERS Safety Report 11419031 (Version 1)
Quarter: 2015Q3

REPORT INFORMATION
  Report Type: Spontaneous
  Country: US (occurrence: US)
  Receive Date: 20150826
  Receipt Date: 20150826
  Transmission Date: 20151125
  Serious: Yes (Hospitalization)
  Sender: FDA-Public Use
  Company Number: US-ACCORD-033312

PATIENT
  Age: 65 Year
  Sex: Female

DRUGS (26)
  1. ACETYLSALICYLIC ACID [Concomitant]
     Active Substance: ASPIRIN
  2. ESOMEPRAZOLE/ESOMEPRAZOLE MAGNESIUM/ESOMEPRAZOLE SODIUM [Concomitant]
     Dosage: 40 MG DAILY
  3. INSULIN ASPART [Concomitant]
     Active Substance: INSULIN ASPART
     Dosage: 12 UNITS TIDAC
  4. AMLODIPINE [Concomitant]
     Active Substance: AMLODIPINE BESYLATE
  5. DOCUSATE [Concomitant]
     Active Substance: DOCUSATE
     Dosage: 100MG DAILY PRN
  6. IRON [Concomitant]
     Active Substance: IRON
     Dosage: 325 MG BID
  7. FOLIC ACID. [Concomitant]
     Active Substance: FOLIC ACID
     Dosage: 1 MG DAILY
  8. PREGABALIN. [Concomitant]
     Active Substance: PREGABALIN
     Dosage: 25 MG DAILY
  9. PEGFILGRASTIM [Concomitant]
     Active Substance: PEGFILGRASTIM
     Dosage: 6 MG ONCE SUBQ PER CHEMOTHERAPY?CYCLE, BEGINNING 24-72 HOURS AFTER?COMPLETION OF CHEMOTHERAPY
  10. PRASUGREL [Concomitant]
     Active Substance: PRASUGREL
     Dosage: 5 MG DAILY
  11. RANITIDINE [Concomitant]
     Active Substance: RANITIDINE\RANITIDINE HYDROCHLORIDE
     Dosage: 150 MG DAILY
  12. NEBIVOLOL. [Concomitant]
     Active Substance: NEBIVOLOL
  13. ROSUVASTATIN/ROSUVASTATIN CALCIUM [Concomitant]
     Dosage: 10 MG DAILY
  14. CYCLOPHOSPHAMIDE/CYCLOPHOSPHAMIDE MONOHYDRATE [Suspect]
     Active Substance: CYCLOPHOSPHAMIDE
     Indication: INTRADUCTAL PROLIFERATIVE BREAST LESION
     Dosage: COMPLETED 3 CHEMOTHERAPY CYCLE.?RECEIVED EVERY 3 WEEKS.
  15. DEXAMETHASONE. [Concomitant]
     Active Substance: DEXAMETHASONE
     Dosage: 2 TABLETS BID, ONLY FOR 3 DAYS?STARTING 1 DAY BEFORE CHEMOTHERAPY
  16. MECLOZINE [Concomitant]
     Active Substance: MECLIZINE\MECLIZINE HYDROCHLORIDE
     Dosage: 12.5 MG 2 TABLETS DAILY
  17. METOCLOPRAMIDE. [Concomitant]
     Active Substance: METOCLOPRAMIDE
     Dosage: 10 MG Q 6 HOURS PRN
  18. HYDROCHLOROTHIAZIDE. [Concomitant]
     Active Substance: HYDROCHLOROTHIAZIDE
     Dosage: 12.5 MG DAILY
  19. LEVETIRACETAM. [Concomitant]
     Active Substance: LEVETIRACETAM
     Dosage: 75 MG Q 12 HOURS
  20. ONDANSETRON [Concomitant]
     Active Substance: ONDANSETRON
     Dosage: 8 MG TID FOR 2 DAYS AFTER?CHEMOTHERAPY
  21. HYDROCODONE BITARTRATE/PARACETAMOL [Concomitant]
     Dosage: 5-500 MG DAILY PRN
  22. INSULIN GLARGINE [Concomitant]
     Active Substance: INSULIN GLARGINE
     Dosage: 45 UNITS AT BEDTIME
  23. LINACLOTIDE [Concomitant]
     Active Substance: LINACLOTIDE
     Dosage: 145 MCG DAILY
  24. DOCETAXEL. [Suspect]
     Active Substance: DOCETAXEL
     Indication: INTRADUCTAL PROLIFERATIVE BREAST LESION
     Dosage: COMPLETED 3 CHEMOTHERAPY CYCLE.
     Route: 042
  25. MEMANTINE. [Concomitant]
     Active Substance: MEMANTINE
     Dosage: 5 MG DAILY
  26. TRAZODONE [Concomitant]
     Active Substance: TRAZODONE HYDROCHLORIDE
     Dosage: 50 MG AT BEDTIME

REACTIONS (1)
  - Myositis [Recovered/Resolved]
